FAERS Safety Report 5720832-7 (Version None)
Quarter: 2008Q2

REPORT INFORMATION
  Report Type: 
  Country: None (occurrence: None)
  Receive Date: 20080429
  Receipt Date: 20080421
  Transmission Date: 20081010
  Serious: Yes (Hospitalization)
  Sender: FDA-Public Use
  Company Number: PHRM2008FR01344

PATIENT
  Age: 59 Year
  Sex: Female

DRUGS (3)
  1. ZOMETA [Suspect]
     Indication: OSTEOPOROSIS
     Dosage: 1 DF, QMO
     Route: 042
     Dates: start: 20060505, end: 20070226
  2. CORTICOSTEROIDS [Concomitant]
     Indication: TEMPORAL ARTERITIS
  3. SOLU-MEDROL [Suspect]
     Dosage: 1 DF, QD
     Route: 042
     Dates: start: 20060505, end: 20070226

REACTIONS (4)
  - ERYTHEMA [None]
  - FACE OEDEMA [None]
  - INAPPROPRIATE SCHEDULE OF DRUG ADMINISTRATION [None]
  - LARYNGEAL OEDEMA [None]
